FAERS Safety Report 8092855-7 (Version None)
Quarter: 2012Q1

REPORT INFORMATION
  Report Type: 
  Country: None (occurrence: None)
  Receive Date: 20120128
  Receipt Date: 20110725
  Transmission Date: 20120608
  Serious: No
  Sender: FDA-Public Use
  Company Number: US-ABBOTT-11P-163-0841662-00

PATIENT
  Age: 33 Year
  Sex: Female

DRUGS (7)
  1. HUMIRA [Suspect]
     Indication: PSORIASIS
     Dates: start: 20110401
  2. BIRTH CONTROL PILLS [Concomitant]
     Indication: PRODUCT USED FOR UNKNOWN INDICATION
  3. DESONIDE [Concomitant]
     Indication: PSORIASIS
  4. TRIAMCINOLONE [Concomitant]
     Indication: PSORIASIS
     Dosage: SPRAY
  5. ALLEGRA [Concomitant]
     Indication: HYPERSENSITIVITY
  6. FLONASE [Concomitant]
     Indication: HYPERSENSITIVITY
     Dosage: 2 SQUIRTS PER NOSTRIL
  7. CLOBETASOL [Concomitant]
     Indication: PSORIASIS
     Dosage: 1-2 TIMES DAILY

REACTIONS (5)
  - VAGINAL DISCHARGE [None]
  - VAGINAL ODOUR [None]
  - DRUG EFFECT DECREASED [None]
  - VAGINITIS BACTERIAL [None]
  - PSORIASIS [None]
